FAERS Safety Report 11695001 (Version 1)
Quarter: 2015Q4

REPORT INFORMATION
  Report Type: Report from Study
  Country: FR (occurrence: FR)
  Receive Date: 20151103
  Receipt Date: 20151103
  Transmission Date: 20160304
  Serious: Yes (Death, Other)
  Sender: FDA-Public Use
  Company Number: FR-BRISTOL-MYERS SQUIBB COMPANY-BMS-2015-016225

PATIENT
  Age: 55 Year
  Sex: Female
  Weight: 108 kg

DRUGS (3)
  1. CISPLATIN. [Suspect]
     Active Substance: CISPLATIN
     Indication: SMALL CELL LUNG CANCER
     Dosage: 490 MG, UNK
     Route: 065
     Dates: start: 20141021, end: 20141021
  2. IPILIMUMAB [Suspect]
     Active Substance: IPILIMUMAB
     Indication: SMALL CELL LUNG CANCER
     Route: 065
  3. ETOPOSIDE. [Suspect]
     Active Substance: ETOPOSIDE
     Indication: SMALL CELL LUNG CANCER
     Dosage: 600 MG, UNK
     Route: 065
     Dates: start: 20141021

REACTIONS (2)
  - Thrombocytopenia [Unknown]
  - Sudden death [Fatal]

NARRATIVE: CASE EVENT DATE: 20141103
